FAERS Safety Report 7089954-5 (Version None)
Quarter: 2010Q4

REPORT INFORMATION
  Report Type: 
  Country: None (occurrence: None)
  Receive Date: 20101108
  Receipt Date: 20101021
  Transmission Date: 20110411
  Serious: Yes (Other)
  Sender: FDA-Public Use
  Company Number: IL-AMGEN-ISRSP2010001438

PATIENT

DRUGS (6)
  1. ENBREL [Suspect]
     Indication: ANKYLOSING SPONDYLITIS
     Dates: start: 20100701
  2. ASPIRIN [Concomitant]
  3. BISOPROLOL FUMARATE [Concomitant]
  4. CRESTOR [Concomitant]
  5. AMIDOPYRINE [Concomitant]
  6. ATACAND [Concomitant]

REACTIONS (4)
  - ASPHYXIA [None]
  - ERYTHEMA [None]
  - HOT FLUSH [None]
  - PRURITUS [None]
